FAERS Safety Report 7131998-9 (Version None)
Quarter: 2010Q4

REPORT INFORMATION
  Report Type: 
  Country: None (occurrence: None)
  Receive Date: 20101129
  Receipt Date: 20101129
  Transmission Date: 20110411
  Serious: Yes (Other)
  Sender: FDA-Public Use
  Company Number: None

PATIENT
  Age: 28 Year
  Sex: Female
  Weight: 90.7194 kg

DRUGS (2)
  1. PRISTIQ [Suspect]
     Indication: DEPRESSION
     Dosage: 50 MG TAKE 1/2 TO 1 TAB DAILY EVERY DAY DAILY EVENT STARTED WHEN USE + AFTER
     Dates: start: 20101104
  2. HYDROXYZINE [Suspect]
     Indication: ANXIETY
     Dosage: 50 MG TAKE 1/2 \-1 TAB  DAILY
     Dates: start: 20100917

REACTIONS (9)
  - ANGER [None]
  - CONDITION AGGRAVATED [None]
  - DEPRESSION [None]
  - FATIGUE [None]
  - FEELING ABNORMAL [None]
  - HALLUCINATIONS, MIXED [None]
  - HEADACHE [None]
  - LAZINESS [None]
  - MALAISE [None]
